FAERS Safety Report 5595768-5 (Version None)
Quarter: 2008Q1

REPORT INFORMATION
  Report Type: 
  Country: None (occurrence: None)
  Receive Date: 20080118
  Receipt Date: 20080108
  Transmission Date: 20080703
  Serious: Yes (Death, Other)
  Sender: FDA-Public Use
  Company Number: B0498443A

PATIENT
  Age: 76 Year
  Sex: Male
  Weight: 175 kg

DRUGS (7)
  1. VALTREX [Suspect]
     Indication: ENCEPHALITIS HERPES
     Dosage: 1G THREE TIMES PER DAY
     Route: 065
     Dates: start: 20071107, end: 20071207
  2. HEPARIN [Suspect]
  3. TAMSULOSIN HCL [Concomitant]
     Route: 048
  4. NORVASC [Concomitant]
     Indication: HYPERTENSION
     Dosage: 10MG PER DAY
     Route: 048
  5. TAZOCIN [Concomitant]
     Dosage: 45G THREE TIMES PER DAY
     Route: 042
  6. VANCOMYCIN [Concomitant]
     Dosage: 1G TWICE PER DAY
     Route: 042
  7. GENTAMICIN [Concomitant]
     Dosage: 240MG PER DAY
     Route: 042

REACTIONS (8)
  - ATRIAL FIBRILLATION [None]
  - GENERALISED OEDEMA [None]
  - HYPERTENSION [None]
  - NEPHROPATHY TOXIC [None]
  - RASH [None]
  - RENAL FAILURE ACUTE [None]
  - RENAL IMPAIRMENT [None]
  - SUBDURAL HAEMORRHAGE [None]
